FAERS Safety Report 23571389 (Version 8)
Quarter: 2024Q4

REPORT INFORMATION
  Report Type: Report from Study
  Country: US (occurrence: US)
  Receive Date: 20240227
  Receipt Date: 20241231
  Transmission Date: 20250114
  Serious: Yes (Hospitalization, Other)
  Sender: PFIZER
  Company Number: US-PFIZER INC-PV202400025888

PATIENT
  Age: 80 Year
  Sex: Female

DRUGS (8)
  1. IBRANCE [Suspect]
     Active Substance: PALBOCICLIB
     Indication: Breast cancer female
     Dosage: ONCE DAILY FOR 21 DAYS OF A 28
     Route: 048
     Dates: start: 20240219
  2. IBRANCE [Suspect]
     Active Substance: PALBOCICLIB
     Dosage: ONE 125MG TABLET ONCE DAILY FOR 21/28 DAYS
     Route: 048
     Dates: end: 20240402
  3. IBRANCE [Suspect]
     Active Substance: PALBOCICLIB
     Dosage: ONE 125MG TABLET ONCE DAILY FOR 21/28 DAYS
     Route: 048
     Dates: end: 202406
  4. IBRANCE [Suspect]
     Active Substance: PALBOCICLIB
     Dosage: ONE 100MG TABLET ONCE DAILY FOR 21/28 DAYS
     Route: 048
  5. IBRANCE [Suspect]
     Active Substance: PALBOCICLIB
     Dosage: ONE 100MG TABLET ONCE DAILY FOR 21/28 DAYS
     Route: 048
     Dates: start: 202409
  6. IBRANCE [Suspect]
     Active Substance: PALBOCICLIB
     Dosage: 100 MG TABLET ONCE DAILY BY MOUTH FOR 21 DAYS OFF 7 FOR 28-DAY CYCLE
     Route: 048
     Dates: start: 202409
  7. FULVESTRANT [Concomitant]
     Active Substance: FULVESTRANT
     Dosage: TWICE A MONTH
  8. FASLODEX [Concomitant]
     Active Substance: FULVESTRANT
     Dosage: UNK

REACTIONS (13)
  - Colitis ulcerative [Unknown]
  - Acute haemorrhagic ulcerative colitis [Unknown]
  - Abdominal pain [Unknown]
  - Flatulence [Unknown]
  - Condition aggravated [Not Recovered/Not Resolved]
  - Feeling abnormal [Unknown]
  - Nausea [Unknown]
  - Glossodynia [Not Recovered/Not Resolved]
  - Urine odour abnormal [Unknown]
  - Incontinence [Not Recovered/Not Resolved]
  - Asthma [Not Recovered/Not Resolved]
  - Dyspnoea [Not Recovered/Not Resolved]
  - Fatigue [Unknown]

NARRATIVE: CASE EVENT DATE: 20240101
